FAERS Safety Report 4273747-8 (Version None)
Quarter: 2004Q1

REPORT INFORMATION
  Report Type: 
  Country: None (occurrence: None)
  Receive Date: 20040119
  Receipt Date: 20020722
  Transmission Date: 20041129
  Serious: Yes (Disabling, Other)
  Sender: FDA-Public Use
  Company Number: PHEH2002US06620

PATIENT
  Age: 51 Year
  Sex: Female
  Weight: 57 kg

DRUGS (4)
  1. AREDIA [Suspect]
     Indication: METASTASES TO BONE
     Dosage: 90 MG, QMO
     Route: 042
     Dates: start: 19981010, end: 20020403
  2. FEMARA [Concomitant]
  3. VOLTAREN [Concomitant]
  4. DYAZIDE [Concomitant]

REACTIONS (4)
  - BLOOD CREATINE INCREASED [None]
  - GLOMERULONEPHRITIS FOCAL [None]
  - PERITONEAL DIALYSIS [None]
  - RENAL FAILURE CHRONIC [None]
